FAERS Safety Report 10185246 (Version 1)
Quarter: 2014Q2

REPORT INFORMATION
  Report Type: Spontaneous
  Country: US (occurrence: US)
  Receive Date: 20140521
  Receipt Date: 20140521
  Transmission Date: 20141212
  Serious: Yes (Hospitalization, Other)
  Sender: FDA-Public Use
  Company Number: US-MYLANLABS-2014S1011080

PATIENT
  Age: 46 Year
  Sex: Male

DRUGS (2)
  1. INTERLEUKIN-2 [Suspect]
     Dosage: TWICE DAILY DOSES, ONE 5 DAYS CYCLE
     Route: 058
  2. AZATHIOPRINE [Suspect]
     Indication: IMMUNOSUPPRESSANT DRUG THERAPY
     Dosage: 25 MG/DAY
     Route: 065

REACTIONS (2)
  - Myelitis transverse [Recovered/Resolved]
  - Hyperbilirubinaemia [Unknown]
